FAERS Safety Report 9603433 (Version 1)
Quarter: 2013Q4

REPORT INFORMATION
  Report Type: Spontaneous
  Country: DK (occurrence: DK)
  Receive Date: 20131007
  Receipt Date: 20131007
  Transmission Date: 20140711
  Serious: Yes (Hospitalization)
  Sender: FDA-Public Use
  Company Number: DK-WATSON-2013-17666

PATIENT
  Age: 62 Year
  Sex: Male

DRUGS (4)
  1. RAMIPRIL ACTAVIS [Suspect]
     Indication: CARDIAC FAILURE
     Dosage: 2.5 MG, DAILY
     Route: 048
     Dates: start: 20130803
  2. SPIRON /00006201/ [Interacting]
     Indication: OEDEMA DUE TO CARDIAC DISEASE
     Dosage: 25 MG, DAILY
     Route: 048
     Dates: start: 20130423, end: 20130920
  3. DIURAL                             /00032601/ [Concomitant]
     Indication: PRODUCT USED FOR UNKNOWN INDICATION
     Dosage: UNK
     Route: 065
  4. CARDICOR [Concomitant]
     Indication: PRODUCT USED FOR UNKNOWN INDICATION
     Dosage: UNK
     Route: 065

REACTIONS (3)
  - Hyperkalaemia [Recovering/Resolving]
  - Electrocardiogram abnormal [Unknown]
  - Drug interaction [Unknown]
